FAERS Safety Report 11759007 (Version 1)
Quarter: 2015Q4

REPORT INFORMATION
  Report Type: Spontaneous
  Country: US (occurrence: US)
  Receive Date: 20151120
  Receipt Date: 20151120
  Transmission Date: 20160304
  Serious: No
  Sender: FDA-Public Use
  Company Number: US-ASTRAZENECA-2015SF09091

PATIENT
  Age: 96 Year
  Sex: Female

DRUGS (1)
  1. METOPROLOL SUCCINATE. [Suspect]
     Active Substance: METOPROLOL SUCCINATE
     Indication: ATRIAL FIBRILLATION
     Dosage: 37 MG IN THE MORNING AND 25 MG AT NIGHT
     Route: 048

REACTIONS (4)
  - Adverse event [Unknown]
  - Fatigue [Unknown]
  - Abdominal distension [Unknown]
  - Dry mouth [Unknown]
